FAERS Safety Report 9424840 (Version 2)
Quarter: 2013Q3

REPORT INFORMATION
  Report Type: Spontaneous
  Country: US (occurrence: US)
  Receive Date: 20130729
  Receipt Date: 20130802
  Transmission Date: 20140515
  Serious: No
  Sender: FDA-Public Use
  Company Number: US-PFIZER INC-2013218317

PATIENT
  Age: 87 Year
  Sex: Female

DRUGS (5)
  1. XELJANZ [Suspect]
     Indication: RHEUMATOID ARTHRITIS
     Dosage: 5 MG, 2X/DAY
     Route: 048
     Dates: start: 201306, end: 20130720
  2. VITAMIN C [Concomitant]
     Dosage: UNK
  3. VITAMIN B COMPLEX [Concomitant]
     Dosage: UNK
  4. PREDNISONE [Concomitant]
     Dosage: UNK
  5. ULTRAM [Concomitant]
     Dosage: UNK

REACTIONS (3)
  - Headache [Unknown]
  - Pain in extremity [Unknown]
  - Arthralgia [Unknown]
